FAERS Safety Report 22286068 (Version 1)
Quarter: 2023Q2

REPORT INFORMATION
  Report Type: Report from Study
  Country: US (occurrence: US)
  Receive Date: 20230505
  Receipt Date: 20230505
  Transmission Date: 20230722
  Serious: Yes (Other)
  Sender: FDA-Public Use
  Company Number: US-ABBVIE-4751863

PATIENT
  Sex: Female

DRUGS (2)
  1. HUMIRA [Suspect]
     Active Substance: ADALIMUMAB
     Indication: Rheumatoid arthritis
     Route: 058
     Dates: start: 20220908
  2. ENSURE [Concomitant]
     Active Substance: AMINO ACIDS\DEXTROSE\ELECTROLYTES NOS\SOYBEAN OIL\VITAMINS
     Indication: Product used for unknown indication
     Route: 065

REACTIONS (13)
  - Pulmonary oedema [Unknown]
  - Injection site swelling [Unknown]
  - Breath sounds abnormal [Unknown]
  - Feeling abnormal [Unknown]
  - Illness [Unknown]
  - Memory impairment [Unknown]
  - Dyspnoea [Unknown]
  - Decreased appetite [Unknown]
  - Unevaluable event [Unknown]
  - Pulmonary fibrosis [Unknown]
  - Mobility decreased [Unknown]
  - Injection site pruritus [Unknown]
  - Abdominal pain lower [Unknown]
